FAERS Safety Report 4397608-9 (Version None)
Quarter: 2004Q3

REPORT INFORMATION
  Report Type: 
  Country: None (occurrence: None)
  Receive Date: 20040712
  Receipt Date: 20040621
  Transmission Date: 20050211
  Serious: Yes (Death, Hospitalization)
  Sender: FDA-Public Use
  Company Number: EWC020631476

PATIENT
  Age: 66 Year
  Sex: Female
  Weight: 68 kg

DRUGS (8)
  1. GEMCITABINE HYDROCHLORIDE-IV (GEMCITABINE) [Suspect]
     Indication: BREAST CANCER
     Dosage: 1600 MG
     Dates: start: 20020703
  2. DOCETAXEL [Suspect]
     Indication: BREAST CANCER
     Dates: start: 20020612
  3. PRIMASPAN (ACETYLSALICYLIC ACID) [Concomitant]
  4. LOVACOL (LOVASTATIN) [Concomitant]
  5. ASPIRIN [Concomitant]
  6. LOVASTATIN [Concomitant]
  7. ANASTROZOLE [Concomitant]
  8. VANCOMYCIN [Concomitant]

REACTIONS (6)
  - ASPARTATE AMINOTRANSFERASE INCREASED [None]
  - BLOOD BILIRUBIN INCREASED [None]
  - BREAST CANCER METASTATIC [None]
  - C-REACTIVE PROTEIN INCREASED [None]
  - CLOSTRIDIUM COLITIS [None]
  - FEBRILE NEUTROPENIA [None]
